FAERS Safety Report 6524802-0 (Version None)
Quarter: 2009Q4

REPORT INFORMATION
  Report Type: 
  Country: None (occurrence: None)
  Receive Date: 20091214
  Receipt Date: 20090619
  Transmission Date: 20100525
  Serious: Yes (Other)
  Sender: FDA-Public Use
  Company Number: 639784

PATIENT
  Age: 54 Year
  Sex: Female
  Weight: 66.7 kg

DRUGS (5)
  1. PEGASYS [Suspect]
     Indication: HEPATITIS C
     Dosage: 180 UG 1 PER WEEK SUBCUTANEOUS
     Route: 058
     Dates: start: 20070209, end: 20090413
  2. RIBAVIRIN [Suspect]
     Indication: HEPATITIS C
     Dosage: 400 MG 2 PER 1 DAY ORAL
     Route: 048
     Dates: start: 20070309, end: 20090413
  3. LEXAPRO [Concomitant]
  4. HYDROCHLOROTHIAZIDE [Concomitant]
  5. AMLODIPINE (AMLODIPINE BESYLATE) [Concomitant]

REACTIONS (2)
  - RASH PUSTULAR [None]
  - SCAB [None]
